FAERS Safety Report 17880017 (Version 14)
Quarter: 2023Q1

REPORT INFORMATION
  Report Type: Report from Study
  Country: JP (occurrence: JP)
  Receive Date: 20200610
  Receipt Date: 20230206
  Transmission Date: 20230417
  Serious: Yes (Hospitalization, Other)
  Sender: FDA-Public Use
  Company Number: JP-ONO-2020JP013248

PATIENT
  Age: 66 Year
  Sex: Female
  Weight: 63.4 kg

DRUGS (37)
  1. ETELCALCETIDE [Suspect]
     Active Substance: ETELCALCETIDE
     Indication: Hyperparathyroidism secondary
     Dosage: 5 MG, Q56H
     Route: 010
     Dates: start: 20190506, end: 20220418
  2. ETELCALCETIDE [Suspect]
     Active Substance: ETELCALCETIDE
     Dosage: 10 MG, Q56H
     Route: 010
     Dates: start: 20220420
  3. DARBEPOETIN ALFA [Concomitant]
     Active Substance: DARBEPOETIN ALFA
     Dosage: 5 MICROGRAM, QWK
     Route: 065
     Dates: start: 20200424, end: 20201023
  4. DARBEPOETIN ALFA [Concomitant]
     Active Substance: DARBEPOETIN ALFA
     Dosage: 10 MICROGRAM, QWK
     Route: 065
     Dates: start: 20201030, end: 20201106
  5. DARBEPOETIN ALFA [Concomitant]
     Active Substance: DARBEPOETIN ALFA
     Dosage: 30 MICROGRAM, QWK
     Route: 065
     Dates: start: 20201113, end: 20201120
  6. DARBEPOETIN ALFA [Concomitant]
     Active Substance: DARBEPOETIN ALFA
     Dosage: 60 MICROGRAM, QWK
     Route: 065
     Dates: start: 20201127, end: 20201204
  7. DARBEPOETIN ALFA [Concomitant]
     Active Substance: DARBEPOETIN ALFA
     Dosage: 90 MICROGRAM, QWK
     Route: 065
     Dates: start: 20201211, end: 20201218
  8. DARBEPOETIN ALFA [Concomitant]
     Active Substance: DARBEPOETIN ALFA
     Dosage: 40 MICROGRAM, QWK
     Route: 065
     Dates: start: 20201225, end: 20210205
  9. DARBEPOETIN ALFA [Concomitant]
     Active Substance: DARBEPOETIN ALFA
     Dosage: 20 MICROGRAM, QWK
     Route: 065
     Dates: start: 20210212, end: 20210312
  10. DARBEPOETIN ALFA [Concomitant]
     Active Substance: DARBEPOETIN ALFA
     Dosage: 10 MICROGRAM, QWK
     Route: 065
     Dates: start: 20210319, end: 20220107
  11. DARBEPOETIN ALFA [Concomitant]
     Active Substance: DARBEPOETIN ALFA
     Dosage: 60 MICROGRAM, QWK
     Route: 065
     Dates: start: 20220114, end: 20220121
  12. DARBEPOETIN ALFA [Concomitant]
     Active Substance: DARBEPOETIN ALFA
     Dosage: 90 MICROGRAM, QWK
     Route: 065
     Dates: start: 20220128, end: 20220204
  13. DARBEPOETIN ALFA [Concomitant]
     Active Substance: DARBEPOETIN ALFA
     Dosage: 120 MICROGRAM, QWK
     Route: 065
     Dates: start: 20220211, end: 20220304
  14. DARBEPOETIN ALFA [Concomitant]
     Active Substance: DARBEPOETIN ALFA
     Dosage: 160 MICROGRAM, QWK
     Route: 065
     Dates: start: 20220311, end: 20220715
  15. DARBEPOETIN ALFA [Concomitant]
     Active Substance: DARBEPOETIN ALFA
     Dosage: 120 MICROGRAM, QWK
     Route: 065
     Dates: start: 20220722, end: 20220722
  16. DARBEPOETIN ALFA [Concomitant]
     Active Substance: DARBEPOETIN ALFA
     Dosage: 90 MICROGRAM, QWK
     Route: 065
     Dates: start: 20220729, end: 20220805
  17. DARBEPOETIN ALFA [Concomitant]
     Active Substance: DARBEPOETIN ALFA
     Dosage: 60 MICROGRAM, QWK
     Route: 065
     Dates: start: 20220812, end: 20220819
  18. DARBEPOETIN ALFA [Concomitant]
     Active Substance: DARBEPOETIN ALFA
     Dosage: 40 MICROGRAM, QWK
     Route: 065
     Dates: start: 20220826, end: 20220916
  19. DARBEPOETIN ALFA [Concomitant]
     Active Substance: DARBEPOETIN ALFA
     Dosage: 30 MICROGRAM, QWK
     Route: 065
     Dates: start: 20220923, end: 20221007
  20. DARBEPOETIN ALFA [Concomitant]
     Active Substance: DARBEPOETIN ALFA
     Dosage: 20 MICROGRAM, QWK
     Route: 065
     Dates: start: 20221014, end: 20221021
  21. DARBEPOETIN ALFA [Concomitant]
     Active Substance: DARBEPOETIN ALFA
     Dosage: 15 MICROGRAM, QWK
     Route: 065
     Dates: start: 20221028
  22. DARBEPOETIN ALFA [Concomitant]
     Active Substance: DARBEPOETIN ALFA
     Dosage: 10 MICROGRAM, QWK
     Route: 065
     Dates: end: 20200418
  23. MAXACALCITOL [Concomitant]
     Active Substance: MAXACALCITOL
     Dosage: 10 MICROGRAM, Q84H
     Route: 041
     Dates: start: 20190111, end: 20190710
  24. MAXACALCITOL [Concomitant]
     Active Substance: MAXACALCITOL
     Dosage: 7.5 MICROGRAM, Q84H
     Route: 040
     Dates: start: 20190712, end: 20200406
  25. MAXACALCITOL [Concomitant]
     Active Substance: MAXACALCITOL
     Dosage: 5 MICROGRAM, Q84H
     Route: 040
     Dates: start: 20200408, end: 20210409
  26. MAXACALCITOL [Concomitant]
     Active Substance: MAXACALCITOL
     Dosage: 5 MICROGRAM, QW
     Route: 040
     Dates: start: 20210412, end: 20210806
  27. MAXACALCITOL [Concomitant]
     Active Substance: MAXACALCITOL
     Dosage: 5 MICROGRAM, Q56H
     Route: 041
     Dates: start: 20210811, end: 20211108
  28. MAXACALCITOL [Concomitant]
     Active Substance: MAXACALCITOL
     Dosage: 2.5 MICROGRAM, Q84H
     Route: 040
     Dates: start: 20211110, end: 20211129
  29. MAXACALCITOL [Concomitant]
     Active Substance: MAXACALCITOL
     Dosage: 2.5 MICROGRAM, Q56H
     Route: 040
     Dates: start: 20220309, end: 20220321
  30. MAXACALCITOL [Concomitant]
     Active Substance: MAXACALCITOL
     Dosage: 5 MICROGRAM, Q56H
     Route: 040
     Dates: start: 20220323, end: 20220411
  31. MAXACALCITOL [Concomitant]
     Active Substance: MAXACALCITOL
     Dosage: 10 MICROGRAM, Q84H
     Route: 040
     Dates: start: 20220413, end: 20220713
  32. FERRIC CITRATE ANHYDROUS [Concomitant]
     Active Substance: FERRIC CITRATE ANHYDROUS
     Dosage: 500 MG, EVERYDAY
     Route: 065
  33. CALCITRIOL [Concomitant]
     Active Substance: CALCITRIOL
     Dosage: 1 MICROGRAM, Q56H
     Route: 040
     Dates: start: 20220715, end: 20220720
  34. CALCITRIOL [Concomitant]
     Active Substance: CALCITRIOL
     Dosage: 0.5 MICROGRAM, Q56H
     Route: 040
     Dates: start: 20220722
  35. Fesin [Concomitant]
     Dosage: 40 MG, QW
     Route: 065
     Dates: start: 20220309
  36. FOSRENOL [Concomitant]
     Active Substance: LANTHANUM CARBONATE
     Dosage: 500 MG, EVERYDAY
     Route: 065
     Dates: start: 20191223, end: 20210201
  37. LANTHANUM CARBONATE [Concomitant]
     Active Substance: LANTHANUM CARBONATE
     Dosage: 500 MILLIGRAM, QD
     Route: 065
     Dates: start: 20210201

REACTIONS (10)
  - Gastrointestinal erosion [Unknown]
  - Haematochezia [Unknown]
  - Breast cancer [Recovered/Resolved]
  - Arteriovenous graft site pseudoaneurysm [Recovered/Resolved]
  - Intervertebral disc protrusion [Recovering/Resolving]
  - Intervertebral disc protrusion [Recovered/Resolved]
  - Deep vein thrombosis [Recovering/Resolving]
  - Lumbar vertebral fracture [Recovering/Resolving]
  - Cellulitis [Recovered/Resolved]
  - Shunt occlusion [Recovered/Resolved]

NARRATIVE: CASE EVENT DATE: 20191102
